FAERS Safety Report 19119483 (Version 2)
Quarter: 2021Q2

REPORT INFORMATION
  Report Type: Spontaneous
  Country: US (occurrence: US)
  Receive Date: 20210412
  Receipt Date: 20210505
  Transmission Date: 20210717
  Serious: No
  Sender: FDA-Public Use
  Company Number: US-ETHYPHARM-2021000499

PATIENT
  Sex: Male

DRUGS (1)
  1. BUPRENORPHINE. [Suspect]
     Active Substance: BUPRENORPHINE
     Dosage: NDC# 50383?0930?93
     Route: 060

REACTIONS (2)
  - Product size issue [Unknown]
  - Drug ineffective [Unknown]
